FAERS Safety Report 5261216-8 (Version None)
Quarter: 2007Q1

REPORT INFORMATION
  Report Type: 
  Country: None (occurrence: None)
  Receive Date: 20070309
  Receipt Date: 20070227
  Transmission Date: 20070707
  Serious: Yes (Hospitalization)
  Sender: FDA-Public Use
  Company Number: FR-PFIZER INC-2007015631

PATIENT
  Sex: Male
  Weight: 92 kg

DRUGS (12)
  1. CELEBREX [Suspect]
     Route: 048
  2. PRAZOSIN HCL [Concomitant]
  3. ALPRAZOLAM [Concomitant]
  4. LEVODOPA [Concomitant]
  5. BROMOCRIPTINE MESYLATE [Concomitant]
  6. DOMPERIDONE [Concomitant]
  7. SPIRONOLACTONE [Concomitant]
  8. CIRKAN [Concomitant]
  9. CITALOPRAM HYDROBROMIDE [Concomitant]
  10. OXAZEPAM [Concomitant]
  11. HYDROXYZINE [Concomitant]
  12. PARIET [Concomitant]

REACTIONS (1)
  - FASCIITIS [None]
